FAERS Safety Report 20702456 (Version 4)
Quarter: 2024Q1

REPORT INFORMATION
  Report Type: Spontaneous
  Country: US (occurrence: US)
  Receive Date: 20220412
  Receipt Date: 20240206
  Transmission Date: 20240409
  Serious: Yes (Hospitalization)
  Sender: FDA-Public Use
  Company Number: US-PFIZER INC-202101276023

PATIENT
  Age: 57 Year
  Sex: Male
  Weight: 72.562 kg

DRUGS (4)
  1. INLYTA [Suspect]
     Active Substance: AXITINIB
     Indication: Renal cell carcinoma
     Dosage: 5 MG, 2X/DAY (EVERY 12 HOURS)
     Route: 048
     Dates: start: 20210823
  2. INLYTA [Suspect]
     Active Substance: AXITINIB
     Dosage: TAKE 1 TABLET EVERY 12 HOURS
     Dates: start: 20210910, end: 202312
  3. INLYTA [Suspect]
     Active Substance: AXITINIB
     Dosage: 5 MG, 2X/DAY
     Route: 048
     Dates: start: 20210924
  4. INLYTA [Suspect]
     Active Substance: AXITINIB
     Dosage: ONE TABLET EVERY OTHER DAY AND TWO TABLETS EVERY OTHER DAY ALTERNATING

REACTIONS (10)
  - Biliary obstruction [Recovering/Resolving]
  - Pyrexia [Recovering/Resolving]
  - Pancreatitis [Recovering/Resolving]
  - Infection [Recovering/Resolving]
  - Abdominal discomfort [Recovering/Resolving]
  - Neoplasm progression [Recovering/Resolving]
  - Pancreatic disorder [Unknown]
  - Blood pressure increased [Recovering/Resolving]
  - Off label use [Unknown]
  - Product use issue [Unknown]

NARRATIVE: CASE EVENT DATE: 20210101
